FAERS Safety Report 10378522 (Version 2)
Quarter: 2014Q3

REPORT INFORMATION
  Report Type: Spontaneous
  Country: ES (occurrence: ES)
  Receive Date: 20140812
  Receipt Date: 20140812
  Transmission Date: 20150326
  Serious: Yes (Other)
  Sender: FDA-Public Use
  Company Number: ES-GILEAD-2014-0105008

PATIENT
  Age: 18 Year
  Sex: Male

DRUGS (4)
  1. LAMIVUDINE. [Concomitant]
     Active Substance: LAMIVUDINE
     Dosage: UNK
     Dates: start: 200710
  2. HEPSERA [Concomitant]
     Active Substance: ADEFOVIR DIPIVOXIL
     Indication: CHRONIC HEPATITIS B
     Dosage: UNK
     Dates: start: 200710
  3. TENOFOVIR DISOPROXIL FUMARATE [Suspect]
     Active Substance: TENOFOVIR DISOPROXIL FUMARATE
     Indication: CHRONIC HEPATITIS B
     Dosage: UNK
     Route: 065
     Dates: start: 201204
  4. LAMIVUDINE. [Concomitant]
     Active Substance: LAMIVUDINE
     Dosage: UNK
     Dates: start: 200506, end: 200703

REACTIONS (1)
  - Optic atrophy [Recovering/Resolving]
